FAERS Safety Report 7296301-2 (Version None)
Quarter: 2011Q1

REPORT INFORMATION
  Report Type: 
  Country: None (occurrence: None)
  Receive Date: 20110216
  Receipt Date: 20110207
  Transmission Date: 20110831
  Serious: Yes (Other)
  Sender: FDA-Public Use
  Company Number: US-AMGEN-USASP2011007092

PATIENT
  Age: 50 Year
  Sex: Male
  Weight: 113.38 kg

DRUGS (11)
  1. METAXALONE [Concomitant]
     Dosage: 800 MG, PRN
  2. CEFIXIME [Concomitant]
     Dosage: 10 MG, BID
  3. HUMIRA [Concomitant]
     Dosage: 40 MG, QWK
     Route: 058
     Dates: start: 20101201
  4. OLMESARTAN MEDOXOMIL [Concomitant]
     Dosage: 40 MG, UNK
  5. AMLODIPINE [Concomitant]
     Dosage: 5 MG, QD
  6. COLCHICINE [Concomitant]
     Dosage: 0.6 MG, PRN
  7. ROSUVASTATIN CALCIUM [Concomitant]
     Dosage: 10 MG, QD
  8. ALLOPURINOL [Concomitant]
     Dosage: 300 MG, QD
  9. ENBREL [Suspect]
     Indication: PSORIATIC ARTHROPATHY
  10. CITALOPRAM [Concomitant]
     Dosage: 20 MG, QD
  11. HYDROCODONE [Concomitant]
     Dosage: UNK UNK, PRN

REACTIONS (8)
  - MENTAL STATUS CHANGES [None]
  - AMNESIA [None]
  - DRUG INEFFECTIVE [None]
  - FEELING ABNORMAL [None]
  - PSORIASIS [None]
  - MEMORY IMPAIRMENT [None]
  - FATIGUE [None]
  - CONFUSIONAL STATE [None]
